FAERS Safety Report 24899300 (Version 4)
Quarter: 2025Q1

REPORT INFORMATION
  Report Type: Report from Study
  Country: DE (occurrence: DE)
  Receive Date: 20250129
  Receipt Date: 20250218
  Transmission Date: 20250409
  Serious: No
  Sender: NOVARTIS
  Company Number: DE-002147023-NVSC2025DE011368

PATIENT
  Age: 37 Year
  Sex: Female
  Weight: 78 kg

DRUGS (9)
  1. COSENTYX [Suspect]
     Active Substance: SECUKINUMAB
     Indication: Hidradenitis
     Route: 058
     Dates: start: 20240711, end: 20240711
  2. COSENTYX [Suspect]
     Active Substance: SECUKINUMAB
     Route: 058
     Dates: start: 20240720, end: 20240720
  3. COSENTYX [Suspect]
     Active Substance: SECUKINUMAB
     Route: 058
     Dates: start: 20240725, end: 20240725
  4. COSENTYX [Suspect]
     Active Substance: SECUKINUMAB
     Route: 058
     Dates: start: 20240801, end: 20240801
  5. COSENTYX [Suspect]
     Active Substance: SECUKINUMAB
     Route: 058
     Dates: start: 20240905, end: 20240905
  6. COSENTYX [Suspect]
     Active Substance: SECUKINUMAB
     Route: 058
     Dates: start: 20241003, end: 20241003
  7. COSENTYX [Suspect]
     Active Substance: SECUKINUMAB
     Route: 058
     Dates: start: 20241031, end: 20241031
  8. COSENTYX [Suspect]
     Active Substance: SECUKINUMAB
     Route: 058
     Dates: start: 20241128, end: 20241128
  9. COSENTYX [Suspect]
     Active Substance: SECUKINUMAB
     Route: 058
     Dates: start: 20241229, end: 20241229

REACTIONS (1)
  - Abscess limb [Recovered/Resolved]

NARRATIVE: CASE EVENT DATE: 20241108
